FAERS Safety Report 5390161-2 (Version None)
Quarter: 2007Q3

REPORT INFORMATION
  Report Type: 
  Country: None (occurrence: None)
  Receive Date: 20070716
  Receipt Date: 20070716
  Transmission Date: 20080115
  Serious: No
  Sender: FDA-Public Use
  Company Number: None

PATIENT
  Age: 10 Year
  Sex: Female
  Weight: 35.8342 kg

DRUGS (1)
  1. CEFDINIR [Suspect]
     Indication: PHARYNGITIS STREPTOCOCCAL
     Dosage: 2 TEASPOONSFUL ONCE DAILY PO
     Route: 048
     Dates: start: 20070619, end: 20070621

REACTIONS (2)
  - DIARRHOEA [None]
  - FAECAL INCONTINENCE [None]
